FAERS Safety Report 7010523-7 (Version None)
Quarter: 2010Q3

REPORT INFORMATION
  Report Type: 
  Country: None (occurrence: None)
  Receive Date: 20100923
  Receipt Date: 20100914
  Transmission Date: 20110219
  Serious: Yes (Other)
  Sender: FDA-Public Use
  Company Number: US-WATSON-2010-11858

PATIENT
  Sex: Male
  Weight: 86.168 kg

DRUGS (5)
  1. FENTANYL-25 [Suspect]
     Indication: PAIN
     Dosage: 1 PATCH, Q 3 DAYS
     Route: 062
     Dates: start: 20050101, end: 20100818
  2. FENTANYL-25 [Suspect]
     Dosage: 1 PATCH, Q 3 DAYS
     Route: 062
     Dates: start: 20050101, end: 20100101
  3. FENTANYL-100 [Suspect]
     Indication: PAIN
     Dosage: 1 PATCH, Q 3 DAYS
     Route: 062
     Dates: start: 20050101, end: 20100818
  4. FENTANYL-100 [Suspect]
     Dosage: 1 PATCH, Q 3 DAYS
     Route: 062
     Dates: start: 20050101, end: 20100101
  5. GABAPENTIN [Suspect]
     Indication: PAIN
     Dosage: 600 MG, BID
     Route: 048
     Dates: start: 20050101

REACTIONS (5)
  - AMNESIA [None]
  - CARDIAC ARREST [None]
  - HYPERVENTILATION [None]
  - OVERDOSE [None]
  - UNRESPONSIVE TO STIMULI [None]
